FAERS Safety Report 5781779-3 (Version None)
Quarter: 2008Q2

REPORT INFORMATION
  Report Type: 
  Country: None (occurrence: None)
  Receive Date: 20080623
  Receipt Date: 20080613
  Transmission Date: 20081010
  Serious: Yes (Hospitalization)
  Sender: FDA-Public Use
  Company Number: DK-AVENTIS-200815604GDDC

PATIENT
  Age: 84 Year
  Sex: Male

DRUGS (8)
  1. DESMOPRESSIN ACETATE [Suspect]
     Indication: NOCTURIA
     Route: 060
     Dates: start: 20071105, end: 20080612
  2. TERAZOSIN HCL [Concomitant]
     Route: 048
     Dates: start: 20050101
  3. FINASTERIDE [Concomitant]
     Route: 048
     Dates: start: 20050101
  4. SERTRALINE [Concomitant]
     Indication: DEPRESSION
     Route: 048
     Dates: start: 20050101
  5. CHOLESTYRAMINE [Concomitant]
     Route: 048
     Dates: start: 20070801
  6. ASPIRIN [Concomitant]
     Route: 048
     Dates: start: 20000101
  7. THROAT                             /00283001/ [Concomitant]
     Indication: DRY MOUTH
     Route: 048
     Dates: start: 20071110
  8. FERROUS SULFATE TAB [Concomitant]
     Route: 048
     Dates: start: 20080312

REACTIONS (2)
  - DIZZINESS [None]
  - VISION BLURRED [None]
